FAERS Safety Report 9617291 (Version 2)
Quarter: 2013Q4

REPORT INFORMATION
  Report Type: Spontaneous
  Country: GB (occurrence: GB)
  Receive Date: 20131011
  Receipt Date: 20131104
  Transmission Date: 20140711
  Serious: Yes (Hospitalization, Disabling)
  Sender: FDA-Public Use
  Company Number: GB-PFIZER INC-2013286134

PATIENT
  Age: 66 Year
  Sex: Female
  Weight: 69 kg

DRUGS (11)
  1. CYTARABINE [Suspect]
     Indication: ACUTE MYELOID LEUKAEMIA
     Dosage: 3000 MG/M2 UNIT DOSE
     Route: 042
     Dates: start: 20130902, end: 20130906
  2. DAUNORUBICIN [Concomitant]
     Dosage: UNK
  3. SERETIDE [Concomitant]
     Dosage: UNK
  4. TIOTROPIUM [Concomitant]
     Dosage: UNK
  5. TINZAPARIN [Concomitant]
     Dosage: UNK
  6. FRESUBIN [Concomitant]
     Dosage: UNK
  7. VITAMIN B COMPLEX [Concomitant]
     Dosage: UNK
  8. THIAMINE [Concomitant]
     Dosage: UNK
  9. METOCLOPRAMIDE [Concomitant]
     Dosage: UNK
  10. PHOSPHATE-SANDOZ [Concomitant]
     Dosage: UNK
  11. LEVOFLOXACIN [Concomitant]
     Dosage: UNK

REACTIONS (2)
  - Nervous system disorder [Recovering/Resolving]
  - Toxicity to various agents [Recovering/Resolving]
